FAERS Safety Report 7173184-2 (Version None)
Quarter: 2010Q4

REPORT INFORMATION
  Report Type: 
  Country: None (occurrence: None)
  Receive Date: 20101219
  Receipt Date: 20100223
  Transmission Date: 20110411
  Serious: No
  Sender: FDA-Public Use
  Company Number: US-AMGEN-KDL394670

PATIENT

DRUGS (7)
  1. ENBREL [Suspect]
     Indication: PRODUCT USED FOR UNKNOWN INDICATION
     Dosage: 50 MG, QWK
     Dates: start: 20060101
  2. SIMVASTATIN [Concomitant]
     Dosage: 40 MG, UNK
  3. HYDROXYCHLOROQUINE SULFATE [Concomitant]
     Dosage: 200 MG, UNK
  4. PREDNISONE [Concomitant]
     Dosage: 10 MG, UNK
  5. METHOTREXATE [Concomitant]
     Dosage: 2.5 MG, UNK
  6. MICARDIS HCT [Concomitant]
     Dosage: 25 MG, UNK
  7. SULFASALAZINE [Concomitant]
     Dosage: 500 MG, UNK

REACTIONS (1)
  - SINUSITIS [None]
